FAERS Safety Report 25680325 (Version 1)
Quarter: 2025Q3

REPORT INFORMATION
  Report Type: Spontaneous
  Country: IN (occurrence: IN)
  Receive Date: 20250814
  Receipt Date: 20250814
  Transmission Date: 20251021
  Serious: Yes (Hospitalization)
  Sender: REGENERON
  Company Number: IN-BAYER-2025A106345

PATIENT
  Age: 5 Year

DRUGS (10)
  1. EYLEA [Suspect]
     Active Substance: AFLIBERCEPT
     Indication: Eye operation
     Route: 031
     Dates: start: 20250724
  2. TMIDE [Concomitant]
     Indication: Product used for unknown indication
  3. HOMIDE [Concomitant]
     Indication: Product used for unknown indication
     Dates: start: 20250725, end: 20250807
  4. UNSPECIFIED INGREDIENT [Concomitant]
     Active Substance: UNSPECIFIED INGREDIENT
     Indication: Product used for unknown indication
  5. PARACAINE [Concomitant]
     Active Substance: PROPARACAINE HYDROCHLORIDE
     Indication: Product used for unknown indication
  6. GLYCOPYRROLATE [Concomitant]
     Active Substance: GLYCOPYRROLATE
     Indication: Product used for unknown indication
  7. PRED FORTE [Concomitant]
     Active Substance: PREDNISOLONE ACETATE
     Indication: Product used for unknown indication
     Dates: start: 20250725, end: 20250731
  8. PRED FORTE [Concomitant]
     Active Substance: PREDNISOLONE ACETATE
     Dates: start: 20250801, end: 20250807
  9. PRED FORTE [Concomitant]
     Active Substance: PREDNISOLONE ACETATE
     Dates: start: 20250808
  10. P 250 [Concomitant]
     Indication: Product used for unknown indication
     Dosage: 4 ML, TID
     Dates: start: 20250724, end: 20250728

REACTIONS (4)
  - Hospitalisation [Recovering/Resolving]
  - Product administered to patient of inappropriate age [Unknown]
  - Product prescribing issue [Unknown]
  - Product use in unapproved indication [Unknown]
